FAERS Safety Report 12160910 (Version 2)
Quarter: 2016Q2

REPORT INFORMATION
  Report Type: Spontaneous
  Country: US (occurrence: US)
  Receive Date: 20160308
  Receipt Date: 20160405
  Transmission Date: 20160815
  Serious: Yes (Hospitalization, Other)
  Sender: FDA-Public Use
  Company Number: US-ASTRAZENECA-2016SE20987

PATIENT
  Age: 73 Year
  Sex: Female
  Weight: 88.5 kg

DRUGS (17)
  1. METOPROLOL SUCCINATE. [Suspect]
     Active Substance: METOPROLOL SUCCINATE
     Indication: BLOOD PRESSURE ABNORMAL
     Route: 048
     Dates: start: 2012
  2. PRILOSEC [Suspect]
     Active Substance: OMEPRAZOLE MAGNESIUM
     Indication: GASTROOESOPHAGEAL REFLUX DISEASE
     Route: 048
     Dates: start: 2012
  3. BABY ASPIRIN [Concomitant]
     Active Substance: ASPIRIN
     Indication: ANTICOAGULANT THERAPY
     Route: 048
     Dates: start: 2011
  4. METHADONE [Concomitant]
     Active Substance: METHADONE HYDROCHLORIDE
     Indication: INTERVERTEBRAL DISC PROTRUSION
     Route: 048
     Dates: start: 2011
  5. DIAZEPAM. [Concomitant]
     Active Substance: DIAZEPAM
     Indication: FEELING OF RELAXATION
     Route: 048
  6. EFFIENT [Concomitant]
     Active Substance: PRASUGREL HYDROCHLORIDE
     Indication: STENT PLACEMENT
     Route: 048
     Dates: start: 201603
  7. BRILINTA [Suspect]
     Active Substance: TICAGRELOR
     Indication: ACUTE CORONARY SYNDROME
     Route: 048
     Dates: start: 20160222, end: 201603
  8. ROPINIROLE HYDROCHLORIDE. [Concomitant]
     Active Substance: ROPINIROLE HYDROCHLORIDE
     Indication: RESTLESSNESS
     Route: 048
     Dates: start: 2012, end: 201508
  9. VALIUM [Concomitant]
     Active Substance: DIAZEPAM
     Indication: FEELING OF RELAXATION
     Route: 048
  10. METOPROLOL SUCCINATE. [Suspect]
     Active Substance: METOPROLOL SUCCINATE
     Indication: BLOOD PRESSURE ABNORMAL
     Route: 048
  11. DIAZEPAM. [Concomitant]
     Active Substance: DIAZEPAM
     Indication: SLEEP DISORDER
     Route: 048
  12. LOVASTATIN. [Concomitant]
     Active Substance: LOVASTATIN
     Indication: BLOOD CHOLESTEROL ABNORMAL
     Route: 048
  13. EFFIENT [Concomitant]
     Active Substance: PRASUGREL HYDROCHLORIDE
     Indication: PRODUCT SUBSTITUTION
     Route: 048
     Dates: start: 201603
  14. BRILINTA [Suspect]
     Active Substance: TICAGRELOR
     Indication: STENT PLACEMENT
     Route: 048
     Dates: start: 20160222, end: 201603
  15. ZOLOFT [Concomitant]
     Active Substance: SERTRALINE HYDROCHLORIDE
     Indication: DEPRESSION
     Route: 048
     Dates: start: 2014
  16. PROMETHAZINE [Concomitant]
     Active Substance: PROMETHAZINE\PROMETHAZINE HYDROCHLORIDE
     Indication: NAUSEA
     Route: 048
     Dates: start: 201508
  17. VALIUM [Concomitant]
     Active Substance: DIAZEPAM
     Indication: VENTRICULAR EXTRASYSTOLES
     Route: 048

REACTIONS (18)
  - Local swelling [Unknown]
  - Stress [Unknown]
  - Hypotension [Recovered/Resolved]
  - Nervousness [Unknown]
  - Fall [Unknown]
  - Mental disorder [Unknown]
  - Limb discomfort [Unknown]
  - Nausea [Unknown]
  - Feeling abnormal [Unknown]
  - Asthenia [Recovered/Resolved]
  - Sleep disorder [Unknown]
  - Dizziness [Unknown]
  - Restlessness [Unknown]
  - Coronary artery occlusion [Recovered/Resolved]
  - Migraine [Unknown]
  - Renal haematoma [Not Recovered/Not Resolved]
  - Weight decreased [Not Recovered/Not Resolved]
  - Syncope [Unknown]

NARRATIVE: CASE EVENT DATE: 2014
